FAERS Safety Report 7502511-9 (Version None)
Quarter: 2011Q2

REPORT INFORMATION
  Report Type: 
  Country: None (occurrence: None)
  Receive Date: 20110517
  Receipt Date: 20110502
  Transmission Date: 20111010
  Serious: Yes (Other)
  Sender: FDA-Public Use
  Company Number: 2011-1320

PATIENT
  Age: 63 Year
  Sex: Female

DRUGS (2)
  1. TIGAN [Concomitant]
  2. APOKYN [Suspect]
     Indication: PARKINSON'S DISEASE
     Dosage: 0.7 ML (0.7 ML,INITIAL TEST DOSE),SUBCUTANEOUS
     Route: 058
     Dates: start: 20110502, end: 20110502

REACTIONS (2)
  - VOMITING [None]
  - NAUSEA [None]
